FAERS Safety Report 8250787-5 (Version None)
Quarter: 2012Q1

REPORT INFORMATION
  Report Type: 
  Country: None (occurrence: None)
  Receive Date: 20120328
  Receipt Date: 20120315
  Transmission Date: 20120608
  Serious: Yes (Death)
  Sender: FDA-Public Use
  Company Number: JP-2012-14514

PATIENT
  Sex: Female

DRUGS (5)
  1. VASOIAN (VERAPAMIL HYDROCHLORIDE) [Concomitant]
  2. PLETAL [Suspect]
     Dosage: ORAL
     Route: 048
     Dates: start: 20100901
  3. PRONON (PROPAFENONE HYDROCHLORIDE) [Concomitant]
  4. ASPIRIN [Concomitant]
  5. PLAVIX [Concomitant]

REACTIONS (8)
  - GLOSSODYNIA [None]
  - BLOOD PRESSURE FLUCTUATION [None]
  - AUTOPSY [None]
  - HAEMORRHAGE [None]
  - CHEST PAIN [None]
  - CARDIO-RESPIRATORY ARREST [None]
  - PULSE ABNORMAL [None]
  - ASTHENIA [None]
